FAERS Safety Report 9015560 (Version 1)
Quarter: 2013Q1

REPORT INFORMATION
  Report Type: Report from Study
  Country: CA (occurrence: CA)
  Receive Date: 20130116
  Receipt Date: 20130116
  Transmission Date: 20140127
  Serious: Yes (Other)
  Sender: FDA-Public Use
  Company Number: CA-JNJFOC-20130104315

PATIENT
  Sex: Female

DRUGS (4)
  1. REMICADE [Suspect]
     Indication: CROHN^S DISEASE
     Route: 042
     Dates: start: 20100404
  2. CALCIUM 500 [Concomitant]
     Dosage: DOSE: 500 (UNITS UNSPECIFIED)
     Route: 065
  3. IRON SULFATE [Concomitant]
     Dosage: DOSE: 300 (UNITS UNSPECIFIED)
     Route: 065
  4. YASMIN [Concomitant]
     Route: 065

REACTIONS (1)
  - Erythema nodosum [Unknown]
